FAERS Safety Report 22656919 (Version 1)
Quarter: 2023Q2

REPORT INFORMATION
  Report Type: Report from Study
  Country: EG (occurrence: EG)
  Receive Date: 20230630
  Receipt Date: 20230630
  Transmission Date: 20230722
  Serious: Yes (Other)
  Sender: FDA-Public Use
  Company Number: EG-002147023-NVSC2023EG146732

PATIENT
  Age: 55 Year
  Sex: Female

DRUGS (3)
  1. HYRIMOZ [Suspect]
     Active Substance: ADALIMUMAB-ADAZ
     Indication: Rheumatoid arthritis
     Dosage: 40 MG (EVERY OTHER WEEK)
     Route: 065
     Dates: start: 20221016, end: 202303
  2. SOLUPRED [Concomitant]
     Indication: Rheumatoid arthritis
     Dosage: 20 MG (FIVE YEARS AGO PER REPORTERS WORDS (2019) (1 TABLET EVERY DAY)
     Route: 065
  3. MARCAL [Concomitant]
     Indication: Rheumatoid arthritis
     Dosage: 600 MG (1 TABLET EVERY DAY)
     Route: 065
     Dates: start: 202303

REACTIONS (4)
  - Vasculitis [Recovering/Resolving]
  - Rheumatoid factor [Unknown]
  - Red blood cell sedimentation rate increased [Unknown]
  - Drug ineffective [Recovering/Resolving]

NARRATIVE: CASE EVENT DATE: 20221201
